FAERS Safety Report 22163249 (Version 1)
Quarter: 2023Q2

REPORT INFORMATION
  Report Type: Report from Study
  Country: ES (occurrence: ES)
  Receive Date: 20230401
  Receipt Date: 20230401
  Transmission Date: 20230721
  Serious: Yes (Other)
  Sender: FDA-Public Use
  Company Number: ES-AUROBINDO-AUR-APL-2023-013955

PATIENT
  Age: 47 Year
  Sex: Female

DRUGS (5)
  1. METRONIDAZOLE [Suspect]
     Active Substance: METRONIDAZOLE
     Indication: Giardiasis
     Dosage: 500 MILLIGRAM, 3 TIMES A DAY
     Route: 065
  2. ALBENDAZOLE [Suspect]
     Active Substance: ALBENDAZOLE
     Indication: Giardiasis
     Dosage: 400 MILLIGRAM, TWO TIMES A DAY (METRONIDAZOLE PLUS ALBENDAZOLE)
     Route: 065
  3. TINIDAZOLE [Suspect]
     Active Substance: TINIDAZOLE
     Indication: Giardiasis
     Dosage: 2 GRAM SPREAD OVER TWO CONSECUTIVE DAYS
     Route: 065
  4. PAROMOMYCIN [Concomitant]
     Active Substance: PAROMOMYCIN
     Indication: Giardiasis
     Dosage: UNK
     Route: 065
  5. QUINACRINE [Concomitant]
     Active Substance: QUINACRINE
     Indication: Giardiasis
     Dosage: 100 MILLIGRAM
     Route: 065

REACTIONS (1)
  - Treatment failure [Unknown]
